FAERS Safety Report 12215480 (Version 1)
Quarter: 2016Q1

REPORT INFORMATION
  Report Type: Not Available
  Country: IN (occurrence: IN)
  Receive Date: 20160328
  Receipt Date: 20160328
  Transmission Date: 20160526
  Serious: Yes (Hospitalization)
  Sender: FDA-Public Use
  Company Number: IN-ANIPHARMA-2016-IN-000007

PATIENT
  Age: 12 Year
  Sex: Female

DRUGS (2)
  1. RIFAMPACIN [Suspect]
     Active Substance: RIFAMPIN
  2. HYDROCORTISONE RECTAL SUSPENSION (NON-SPECIFC) [Suspect]
     Active Substance: HYDROCORTISONE
     Dosage: 10 MG/M^2

REACTIONS (2)
  - Drug interaction [Unknown]
  - Adrenocortical insufficiency acute [Unknown]
